FAERS Safety Report 21496375 (Version 1)
Quarter: 2022Q4

REPORT INFORMATION
  Report Type: Spontaneous
  Country: US (occurrence: US)
  Receive Date: 20221022
  Receipt Date: 20221022
  Transmission Date: 20230113
  Serious: No
  Sender: FDA-Public Use
  Company Number: US-CELLTRION INC.-2022US006763

PATIENT

DRUGS (30)
  1. INFLECTRA [Suspect]
     Active Substance: INFLIXIMAB-DYYB
     Indication: Product used for unknown indication
     Dosage: UNK (FREQUENCY: 0,2,6 Q8 WKS)
     Route: 065
  2. INFLECTRA [Suspect]
     Active Substance: INFLIXIMAB-DYYB
     Dosage: 400 MG EVERY 2 WEEKS X 2 DOSES THEN 400 MG EVERY 8 WEEKS (STARTING WEEKS AFTER THE 2ND LOADING DOSE)
     Route: 042
  3. AMITRIPTYLINE HYDROCHLORIDE [Concomitant]
     Active Substance: AMITRIPTYLINE HYDROCHLORIDE
     Dosage: EVERY 0,2,6, AND 8 WEEKS
  4. AMITRIPTYLINE HYDROCHLORIDE [Concomitant]
     Active Substance: AMITRIPTYLINE HYDROCHLORIDE
     Dosage: 0.5% KETAMINE AND 1% AMITRIPTYLINE COMPOUNDED INTO CREAM OR GEL INTO 60 GRAM TUBE
  5. ARAVA [Concomitant]
     Active Substance: LEFLUNOMIDE
     Dosage: TAKE 1 TABLET BY MOUTH DAILY
     Route: 048
  6. ASPIRIN [Concomitant]
     Active Substance: ASPIRIN
     Dosage: TAKE 1 TABLE BY MOUTH DAILY
     Route: 048
  7. CYANOCOBALAMIN [Concomitant]
     Active Substance: CYANOCOBALAMIN
     Dosage: (STRENGTH: 1000 MICROGRAM) TAKE 1 TABLET BY MOUTH DAILY
     Route: 048
  8. CYMBALTA [Concomitant]
     Active Substance: DULOXETINE HYDROCHLORIDE
     Dosage: TAKE 3 CAPSULES BY MOUTH DAILY
     Route: 048
  9. PREDNISOLONE [Concomitant]
     Active Substance: PREDNISOLONE
     Dosage: 2 TABS DAILY
  10. DRISDOL [Concomitant]
     Active Substance: ERGOCALCIFEROL
     Dosage: (STRENGTH: 1,250 MCG (50,000 UNIT)) TAKE 1 CAPSULE BY MOUTH ONE TIME PER WEEK
     Route: 048
  11. DRISDOL [Concomitant]
     Active Substance: ERGOCALCIFEROL
  12. ELAVIL [Concomitant]
     Active Substance: AMITRIPTYLINE HYDROCHLORIDE
     Dosage: TAKE 1 TABLET BY MOUTH EVERY DAY AT NIGHT
     Route: 048
  13. EPIPEN [Concomitant]
     Active Substance: EPINEPHRINE
     Indication: Anaphylactic reaction
     Dosage: INJECT 0.3 ML INTO THE MUSCLE AS NEEDED
     Route: 030
  14. FERROUS SULFATE [Concomitant]
     Active Substance: FERROUS SULFATE
     Dosage: (STRENGTH: 325 MG (65 MG IRON)), TAKE 1 TABLET BY MOUTH 2 TIMES DAILY
     Route: 048
  15. HYDRODIURIL [Concomitant]
     Active Substance: HYDROCHLOROTHIAZIDE
     Dosage: TAKE 1 TABLET BY MOUTH DAILY
     Route: 048
  16. JANUMET XR [Concomitant]
     Active Substance: METFORMIN HYDROCHLORIDE\SITAGLIPTIN PHOSPHATE
     Dosage: (STRENGTH: 50 - 1000 MG) TAKE 2 TABLETS BY MOUTH DAILY
     Route: 048
  17. KETAMINE HYDROCHLORIDE [Concomitant]
     Active Substance: KETAMINE HYDROCHLORIDE
     Dosage: 0.5% KETAMINE AND 1% AMITRIPTYLINE COMPOUNDED INTO CREAM OR GEL INTO 60 GRAM TUBE
  18. LAMICTAL [Concomitant]
     Active Substance: LAMOTRIGINE
     Dosage: TAKE 1 TABLET BY MOUTH 2 TIMES DAILY
     Route: 048
  19. MAGNESIUM SULFATE;POTASSIUM;SODIUM CHLORIDE [Concomitant]
     Dosage: (STREGNTH: 17.5 ~3.13 - 1.6 GRAM) TAKE 6 OZ BY MOUTH 2 TIMES DAILY. SUPREP; THE FIRST 6-OUNCE BOTTLE
     Route: 048
  20. NALTREXONE HYDROCHLORIDE [Concomitant]
     Active Substance: NALTREXONE HYDROCHLORIDE
     Dosage: TAKE 4.5 MG PO NIGHTLY
     Route: 048
  21. NEURONTIN [Concomitant]
     Active Substance: GABAPENTIN
     Dosage: TAKE 1 TABLET IN THE MORNING AND 2 TABLETS IN THE EVENING
  22. PRILOSEC [Concomitant]
     Active Substance: OMEPRAZOLE MAGNESIUM
     Dosage: TAKE 1 CAPSULE BY MOUTH EVERY DAY
     Route: 048
  23. PRINIVIL [Concomitant]
     Active Substance: LISINOPRIL
     Dosage: TAKE 1 TABLET BY MOUTH DAILY
     Route: 048
  24. SYNTHROID [Concomitant]
     Active Substance: LEVOTHYROXINE SODIUM
     Dosage: (STRENGTH: 112 MCG) TAKE 1 TABLET BY MOUTH DAILY
     Route: 048
  25. TRENTAL [Concomitant]
     Active Substance: PENTOXIFYLLINE
     Dosage: TAKE 1 TABLET BY MOUTH 3 TIMES DAILY
     Route: 048
  26. VALIUM [Concomitant]
     Active Substance: DIAZEPAM
     Indication: Anxiety
     Dosage: TAKE 1 TAB BY MOUTH 2-3 TIMES DAILY AS NEEDED
     Route: 048
  27. VALIUM [Concomitant]
     Active Substance: DIAZEPAM
     Indication: Panic attack
  28. ZESTRIL [Concomitant]
     Active Substance: LISINOPRIL
     Route: 048
  29. ZOCOR [Concomitant]
     Active Substance: SIMVASTATIN
     Dosage: TAKE 1 TABLET BY MOUTH NIGHTLY
     Route: 048
  30. ZOFRAN [Concomitant]
     Active Substance: ONDANSETRON HYDROCHLORIDE
     Indication: Nausea
     Dosage: TAKE 1 TABLET BY MOUTH EVERY 8 HOURS AS NEEDED
     Route: 048

REACTIONS (1)
  - Unevaluable event [Unknown]
